FAERS Safety Report 24388560 (Version 1)
Quarter: 2024Q4

REPORT INFORMATION
  Report Type: Spontaneous
  Country: GB (occurrence: GB)
  Receive Date: 20241002
  Receipt Date: 20241002
  Transmission Date: 20250115
  Serious: Yes (Death, Life-Threatening, Other)
  Sender: B BRAUN
  Company Number: GB-B.Braun Medical Inc.-2162388

PATIENT
  Age: 84 Year
  Sex: Male

DRUGS (12)
  1. MEROPENEM [Suspect]
     Active Substance: MEROPENEM
     Indication: Urinary tract infection pseudomonal
     Dates: start: 20240809, end: 20240816
  2. DENOSUMAB [Concomitant]
     Active Substance: DENOSUMAB
  3. ACETAMINOPHEN [Concomitant]
     Active Substance: ACETAMINOPHEN
  4. ASCORBIC ACID [Concomitant]
     Active Substance: ASCORBIC ACID
  5. METHENAMINE [Concomitant]
     Active Substance: METHENAMINE
  6. NYSTATIN [Concomitant]
     Active Substance: NYSTATIN
  7. ENOXAPARIN [Concomitant]
     Active Substance: ENOXAPARIN
  8. HYDROXOCOBALAMIN [Concomitant]
     Active Substance: HYDROXOCOBALAMIN
  9. CALCIUM CARBONATE\CHOLECALCIFEROL [Concomitant]
     Active Substance: CALCIUM CARBONATE\CHOLECALCIFEROL
  10. CARBOCYSTEINE [Concomitant]
     Active Substance: CARBOCYSTEINE
  11. TRELEGY ELLIPTA [Concomitant]
     Active Substance: FLUTICASONE FUROATE\UMECLIDINIUM BROMIDE\VILANTEROL TRIFENATATE
  12. FERROUS FUMARATE [Concomitant]
     Active Substance: FERROUS FUMARATE

REACTIONS (3)
  - Pancreatitis necrotising [Unknown]
  - Vomiting [Unknown]
  - Abdominal distension [Unknown]
